FAERS Safety Report 10841406 (Version 1)
Quarter: 2015Q1

REPORT INFORMATION
  Report Type: Spontaneous
  Country: CH (occurrence: CH)
  Receive Date: 20150220
  Receipt Date: 20150220
  Transmission Date: 20150721
  Serious: Yes (Other)
  Sender: FDA-Public Use
  Company Number: CH-ROCHE-1539663

PATIENT
  Age: 75 Year
  Sex: Female

DRUGS (2)
  1. ZELBORAF [Suspect]
     Active Substance: VEMURAFENIB
     Indication: METASTATIC MALIGNANT MELANOMA
     Route: 048
  2. ZELBORAF [Suspect]
     Active Substance: VEMURAFENIB
     Route: 048

REACTIONS (10)
  - Palmar-plantar erythrodysaesthesia syndrome [Recovered/Resolved]
  - Hyperkeratosis [Recovered/Resolved]
  - Keratoacanthoma [Recovering/Resolving]
  - Alopecia [Recovered/Resolved]
  - Keratosis pilaris [Recovered/Resolved]
  - Dysgeusia [Recovered/Resolved]
  - Pruritus generalised [Recovered/Resolved]
  - Mucosal inflammation [Recovered/Resolved]
  - Rash [Recovered/Resolved]
  - Fatigue [Unknown]
